FAERS Safety Report 24905968 (Version 1)
Quarter: 2025Q1

REPORT INFORMATION
  Report Type: Report from Study
  Country: BR (occurrence: BR)
  Receive Date: 20250130
  Receipt Date: 20250130
  Transmission Date: 20250408
  Serious: Yes (Other)
  Sender: JOHNSON AND JOHNSON
  Company Number: BR-JNJFOC-20250169768

PATIENT
  Age: 47 Year
  Sex: Female

DRUGS (11)
  1. SIMPONI [Suspect]
     Active Substance: GOLIMUMAB
     Indication: Psoriatic arthropathy
     Route: 058
     Dates: start: 20231212, end: 202401
  2. SIMPONI [Suspect]
     Active Substance: GOLIMUMAB
  3. LOSARTAN [Concomitant]
     Active Substance: LOSARTAN
  4. ATENOLOL [Concomitant]
     Active Substance: ATENOLOL
  5. HYDROCHLOROTHIAZIDE [Concomitant]
     Active Substance: HYDROCHLOROTHIAZIDE
  6. METFORMIN [Concomitant]
     Active Substance: METFORMIN HYDROCHLORIDE
  7. CLOPIDOGREL [Concomitant]
     Active Substance: CLOPIDOGREL BISULFATE
  8. GLICLAZIDE [Concomitant]
     Active Substance: GLICLAZIDE
  9. PREGABALIN [Concomitant]
     Active Substance: PREGABALIN
  10. FLUOXETINE [Concomitant]
     Active Substance: FLUOXETINE HYDROCHLORIDE
  11. CELECOXIB [Concomitant]
     Active Substance: CELECOXIB

REACTIONS (5)
  - Nephrolithiasis [Recovering/Resolving]
  - Psoriatic arthropathy [Recovering/Resolving]
  - Urinary tract infection [Recovered/Resolved]
  - Fall [Unknown]
  - Off label use [Unknown]

NARRATIVE: CASE EVENT DATE: 20231212
